FAERS Safety Report 5492380-3 (Version None)
Quarter: 2007Q4

REPORT INFORMATION
  Report Type: 
  Country: None (occurrence: None)
  Receive Date: 20071015
  Receipt Date: 20070815
  Transmission Date: 20080405
  Serious: No
  Sender: FDA-Public Use
  Company Number: 2007SP002851

PATIENT
  Sex: Female
  Weight: 52.6173 kg

DRUGS (6)
  1. LUNESTA [Suspect]
     Indication: INSOMNIA
     Dosage: 3 MG;HS;ORAL
     Route: 048
     Dates: start: 20070814
  2. PRAVACHOL [Concomitant]
  3. LISINOPRIL [Concomitant]
  4. GLUCOPHAGE [Concomitant]
  5. ALLEGRA [Concomitant]
  6. DIURETICS [Concomitant]

REACTIONS (1)
  - POOR QUALITY SLEEP [None]
